FAERS Safety Report 9680042 (Version 1)
Quarter: 2013Q4

REPORT INFORMATION
  Report Type: Spontaneous
  Country: US (occurrence: US)
  Receive Date: 20131110
  Receipt Date: 20131110
  Transmission Date: 20140711
  Serious: No
  Sender: FDA-Public Use
  Company Number: -SAAVPROD-MIPO-1000471

PATIENT
  Age: 58 Year
  Sex: Female

DRUGS (1)
  1. MIPOMERSEN [Suspect]
     Indication: TYPE IIA HYPERLIPIDAEMIA
     Dosage: 200 MG, QW
     Route: 059
     Dates: end: 20130803

REACTIONS (4)
  - Injection site bruising [Not Recovered/Not Resolved]
  - Injection site erythema [Not Recovered/Not Resolved]
  - Injection site pruritus [Not Recovered/Not Resolved]
  - Rash [Not Recovered/Not Resolved]
